FAERS Safety Report 16817506 (Version 1)
Quarter: 2019Q3

REPORT INFORMATION
  Report Type: Spontaneous
  Country: JP (occurrence: JP)
  Receive Date: 20190917
  Receipt Date: 20190917
  Transmission Date: 20191005
  Serious: Yes (Death, Other)
  Sender: FDA-Public Use
  Company Number: JP-JNJFOC-20190811383

PATIENT
  Age: 90 Year
  Sex: Female
  Weight: 36 kg

DRUGS (6)
  1. AMOBAN [Concomitant]
     Active Substance: ZOPICLONE
     Indication: INSOMNIA
     Dosage: DAILY DOSE 7.5 MG
     Route: 048
     Dates: start: 20140212, end: 20190729
  2. RIVAROXABAN [Suspect]
     Active Substance: RIVAROXABAN
     Indication: ATRIAL FIBRILLATION
     Dosage: 10 MG, QD
     Route: 048
     Dates: start: 20190328, end: 20190729
  3. NIFEDIPINE. [Concomitant]
     Active Substance: NIFEDIPINE
     Dosage: DAILY DOSE 10 MG
     Route: 048
     Dates: start: 20080911, end: 20190729
  4. DIPYRIDAMOLE. [Concomitant]
     Active Substance: DIPYRIDAMOLE
     Indication: ANGINA PECTORIS
     Dosage: DAILY DOSE 50 MG
     Route: 048
     Dates: start: 20080911, end: 20190729
  5. LANSOPRAZOLE. [Concomitant]
     Active Substance: LANSOPRAZOLE
     Indication: GASTROOESOPHAGEAL REFLUX DISEASE
     Dosage: DAILY DOSE 15 MG
     Route: 048
     Dates: start: 20131024, end: 20190729
  6. DOGMATYL [Concomitant]
     Active Substance: SULPIRIDE
     Indication: DEPRESSION
     Dosage: DAILY DOSE .04 G
     Route: 048
     Dates: start: 20131128, end: 20190729

REACTIONS (8)
  - Coma [Fatal]
  - Blood glucose increased [Unknown]
  - Deafness [Unknown]
  - Subdural haemorrhage [Fatal]
  - Renal cyst [Unknown]
  - Subdural haematoma [Fatal]
  - Decreased appetite [Unknown]
  - Dysphagia [Unknown]

NARRATIVE: CASE EVENT DATE: 20190729
